FAERS Safety Report 21635227 (Version 4)
Quarter: 2023Q2

REPORT INFORMATION
  Report Type: Report from Study
  Country: US (occurrence: US)
  Receive Date: 20221123
  Receipt Date: 20230419
  Transmission Date: 20230722
  Serious: No
  Sender: FDA-Public Use
  Company Number: US-ABBVIE-4210312

PATIENT
  Sex: Female

DRUGS (2)
  1. IMBRUVICA [Suspect]
     Active Substance: IBRUTINIB
     Indication: Chronic lymphocytic leukaemia
     Route: 048
  2. IMBRUVICA [Suspect]
     Active Substance: IBRUTINIB
     Indication: Chronic lymphocytic leukaemia
     Route: 048

REACTIONS (9)
  - Oral pain [Unknown]
  - Stomatitis [Recovering/Resolving]
  - Rash [Not Recovered/Not Resolved]
  - Malaise [Unknown]
  - Glossodynia [Not Recovered/Not Resolved]
  - White blood cell count abnormal [Unknown]
  - Ocular hyperaemia [Unknown]
  - Hypertension [Not Recovered/Not Resolved]
  - Lip swelling [Not Recovered/Not Resolved]
